FAERS Safety Report 10161635 (Version 7)
Quarter: 2015Q1

REPORT INFORMATION
  Report Type: Report from Study
  Country: JP (occurrence: JP)
  Receive Date: 20140509
  Receipt Date: 20150121
  Transmission Date: 20150720
  Serious: Yes (Death, Hospitalization)
  Sender: FDA-Public Use
  Company Number: JP-AMGEN-JPNSP2014032222

PATIENT
  Age: 87 Year
  Sex: Male
  Weight: 42 kg

DRUGS (14)
  1. CELTECT [Concomitant]
     Active Substance: OXATOMIDE
     Indication: PRURITUS
     Dosage: 30 MG, UNK
     Route: 048
  2. ELCITONIN [Concomitant]
     Active Substance: ELCATONIN
     Indication: HYPERPARATHYROIDISM PRIMARY
     Dosage: 40 IU, 3 TIMES/WK
     Route: 030
     Dates: end: 20140224
  3. LAC-B [Concomitant]
     Active Substance: BIFIDOBACTERIUM SPP.
     Indication: PROPHYLAXIS
     Dosage: 3 G, UNK
     Route: 048
  4. CINACALCET HCL - KHK [Suspect]
     Active Substance: CINACALCET HYDROCHLORIDE
     Indication: HYPERCALCAEMIA
  5. GASTER [Concomitant]
     Active Substance: FAMOTIDINE
     Indication: PROPHYLAXIS
     Dosage: 20 MG, UNK
     Route: 048
  6. ELCITONIN [Concomitant]
     Active Substance: ELCATONIN
     Indication: HYPERCALCAEMIA
  7. MIRCERA [Concomitant]
     Active Substance: PEGZEREPOETIN ALFA
     Indication: NEPHROGENIC ANAEMIA
     Dosage: 50-100 MCG, QMO
     Route: 065
  8. LASIX [Concomitant]
     Active Substance: FUROSEMIDE
     Indication: CHRONIC KIDNEY DISEASE
     Dosage: 40 MG, UNK
     Route: 048
  9. ATELEC [Concomitant]
     Active Substance: CILNIDIPINE
     Indication: HYPERTENSION
     Dosage: 10 MG, UNK
     Route: 048
  10. CINACALCET HCL - KHK [Suspect]
     Active Substance: CINACALCET HYDROCHLORIDE
     Indication: HYPERPARATHYROIDISM PRIMARY
     Dosage: 25 MG, BID
     Route: 048
     Dates: start: 20140227
  11. CELTECT [Concomitant]
     Active Substance: OXATOMIDE
     Indication: PRURITUS
  12. WARFARIN [Concomitant]
     Active Substance: WARFARIN
     Indication: ATRIAL FIBRILLATION
     Dosage: 1 MG, UNK
     Route: 048
  13. WARFARIN [Concomitant]
     Active Substance: WARFARIN
     Indication: ATRIAL FIBRILLATION
  14. FEBURIC [Concomitant]
     Active Substance: FEBUXOSTAT
     Indication: HYPERURICAEMIA
     Dosage: 10 MG, UNK
     Route: 048

REACTIONS (5)
  - Vomiting [Recovering/Resolving]
  - Constipation [Unknown]
  - Hypercalcaemia [Fatal]
  - Decreased appetite [Recovered/Resolved]
  - Condition aggravated [Fatal]

NARRATIVE: CASE EVENT DATE: 20140226
